FAERS Safety Report 5500890-5 (Version None)
Quarter: 2007Q4

REPORT INFORMATION
  Report Type: 
  Country: None (occurrence: None)
  Receive Date: 20071029
  Receipt Date: 20071018
  Transmission Date: 20080405
  Serious: Yes (Hospitalization)
  Sender: FDA-Public Use
  Company Number: FR-ASTRAZENECA-2007CG01486

PATIENT
  Age: 18290 Day
  Sex: Female

DRUGS (10)
  1. TENORMIN [Suspect]
     Route: 048
     Dates: end: 20070909
  2. LAROXYL [Suspect]
     Route: 048
     Dates: end: 20070909
  3. TERCIAN [Suspect]
     Route: 048
     Dates: end: 20070909
  4. TIAPRIDAL [Suspect]
     Route: 048
     Dates: end: 20070909
  5. CELLCEPT [Concomitant]
     Dates: end: 20070912
  6. CELLCEPT [Concomitant]
     Dates: start: 20070917
  7. NEORAL [Concomitant]
     Route: 048
  8. PRAVASTATIN [Concomitant]
     Route: 048
  9. SOLUPRED [Concomitant]
  10. BACTRIM [Concomitant]

REACTIONS (2)
  - HYPOXIA [None]
  - LUNG DISORDER [None]
